FAERS Safety Report 8150626 (Version 6)
Quarter: 2012Q4

REPORT INFORMATION
  Report Type: 
  Country: US (occurrence: US)
  Receive Date: 20110922
  Receipt Date: 20121127
  Transmission Date: 20130627
  Serious: Yes (Other)
  Sender: FDA-Public Use
  Company Number: US-ASTRAZENECA-2011SE26822

PATIENT
  Age: 64 Year
  Sex: Female
  Weight: 73.5 kg

DRUGS (22)
  1. SEROQUEL [Suspect]
     Indication: BIPOLAR I DISORDER
     Route: 048
     Dates: start: 201001
  2. SEROQUEL [Suspect]
     Indication: BIPOLAR I DISORDER
     Route: 048
     Dates: start: 200902, end: 201005
  3. SEROQUEL [Suspect]
     Indication: BIPOLAR I DISORDER
     Route: 048
  4. SEROQUEL [Suspect]
     Indication: BIPOLAR I DISORDER
     Route: 048
     Dates: start: 2009
  5. SEROQUEL [Suspect]
     Indication: BIPOLAR I DISORDER
     Dosage: HALF AT 10 P FOLLOWED BY OTHER HALF AT 11P
     Route: 048
  6. SEROQUEL [Suspect]
     Indication: BIPOLAR I DISORDER
     Route: 048
  7. SEROQUEL [Suspect]
     Indication: BIPOLAR I DISORDER
     Route: 048
  8. SYNTHROID [Concomitant]
  9. NEURONTIN [Concomitant]
  10. INDERAL [Concomitant]
  11. POTASSIUM SUPPLEMENT [Concomitant]
  12. CALCIUM [Concomitant]
  13. VITAMIN [Concomitant]
  14. LITHIUM [Concomitant]
  15. LITHIUM [Concomitant]
  16. VALIUM [Concomitant]
  17. VALIUM [Concomitant]
  18. ZYRTEC [Concomitant]
  19. VIT D AND CALCIUM [Concomitant]
  20. NUROTINE [Concomitant]
  21. PROMETHEZINE [Concomitant]
  22. PAXIL [Concomitant]

REACTIONS (20)
  - Road traffic accident [Unknown]
  - Meniscus injury [Unknown]
  - Hypertension [Unknown]
  - Malaise [Unknown]
  - Mania [Not Recovered/Not Resolved]
  - Hunger [Unknown]
  - Facial nerve disorder [Unknown]
  - Stomatitis [Unknown]
  - Confusional state [Unknown]
  - Insomnia [Unknown]
  - Oral pain [Unknown]
  - Somnolence [Unknown]
  - Presyncope [Unknown]
  - Dizziness [Unknown]
  - Weight increased [Unknown]
  - Hypersomnia [Unknown]
  - Intentional drug misuse [Unknown]
  - Drug dose omission [Unknown]
  - Therapeutic response unexpected [Unknown]
  - Drug ineffective [Unknown]
